FAERS Safety Report 7374654-4 (Version None)
Quarter: 2011Q1

REPORT INFORMATION
  Report Type: 
  Country: None (occurrence: None)
  Receive Date: 20110325
  Receipt Date: 20100618
  Transmission Date: 20110831
  Serious: No
  Sender: FDA-Public Use
  Company Number: US-MYLANLABS-2010S1011142

PATIENT
  Age: 43 Year
  Sex: Female
  Weight: 70.31 kg

DRUGS (2)
  1. DILAUDID [Concomitant]
     Indication: BREAKTHROUGH PAIN
     Dates: start: 20100101
  2. FENTANYL-100 [Suspect]
     Indication: PAIN
     Dosage: CHANGED Q3D
     Route: 062
     Dates: start: 20100201

REACTIONS (4)
  - TREMOR [None]
  - MUSCLE TWITCHING [None]
  - DRUG WITHDRAWAL SYNDROME [None]
  - RESTLESSNESS [None]
